FAERS Safety Report 4870339-4 (Version None)
Quarter: 2005Q4

REPORT INFORMATION
  Report Type: 
  Country: None (occurrence: None)
  Receive Date: 20051228
  Receipt Date: 20051216
  Transmission Date: 20060501
  Serious: Yes (Hospitalization, Other)
  Sender: FDA-Public Use
  Company Number: 2005-US-00813

PATIENT
  Age: 56 Year
  Sex: Male

DRUGS (3)
  1. CLOZAPINE [Suspect]
     Indication: BIPOLAR DISORDER
     Dosage: 300 MG, QD, ORAL
     Route: 048
     Dates: start: 20050801
  2. HYDROCHLOROTHIAZIDE [Concomitant]
  3. FAMOTIDINE [Concomitant]

REACTIONS (6)
  - CAVERNOUS SINUS THROMBOSIS [None]
  - DIZZINESS [None]
  - MENINGIOMA [None]
  - PAPILLOEDEMA [None]
  - RENAL CELL CARCINOMA STAGE UNSPECIFIED [None]
  - RENAL FAILURE [None]
